FAERS Safety Report 8687940 (Version 4)
Quarter: 2012Q4

REPORT INFORMATION
  Report Type: Report from Study
  Country: DE (occurrence: DE)
  Receive Date: 20120727
  Receipt Date: 20121011
  Transmission Date: 20130627
  Serious: Yes (Life-Threatening, Hospitalization)
  Sender: FDA-Public Use
  Company Number: DE-BRISTOL-MYERS SQUIBB COMPANY-16778847

PATIENT
  Sex: Male

DRUGS (4)
  1. IPILIMUMAB [Suspect]
     Indication: METASTATIC MALIGNANT MELANOMA
     Dosage: 10mg/kg
     Route: 042
     Dates: start: 20120424, end: 20120605
  2. TAMSULOSIN [Concomitant]
     Dates: start: 201010
  3. RAMIPRIL [Concomitant]
     Dates: start: 20110731
  4. ASS [Concomitant]
     Dates: start: 200803

REACTIONS (2)
  - Urosepsis [Recovered/Resolved with Sequelae]
  - Prostatitis [Unknown]
